FAERS Safety Report 9889106 (Version 1)
Quarter: 2014Q1

REPORT INFORMATION
  Report Type: Spontaneous
  Country: US (occurrence: None)
  Receive Date: 20140207
  Receipt Date: 20140207
  Transmission Date: 20141002
  Serious: Yes (Other)
  Sender: FDA-Public Use
  Company Number: 20140040

PATIENT
  Age: 61 Year
  Sex: Male

DRUGS (4)
  1. DEXAMETHASONE SODIUM PHOSPHATE [Suspect]
     Indication: CHEMOTHERAPY
  2. CYTARABINE [Suspect]
     Indication: CHEMOTHERAPY
  3. CISPLATIN [Suspect]
     Indication: CHEMOTHERAPY
  4. HIGHLY ACTIVE ANTIRETROVIRAL THERAPY [Concomitant]

REACTIONS (3)
  - Pancytopenia [None]
  - Neuropathy peripheral [None]
  - Syncope [None]
